FAERS Safety Report 8906494 (Version 1)
Quarter: 2012Q4

REPORT INFORMATION
  Report Type: Spontaneous
  Country: IN (occurrence: None)
  Receive Date: 20121108
  Receipt Date: 20121108
  Transmission Date: 20130627
  Serious: Yes (Other)
  Sender: FDA-Public Use
  Company Number: IN-1194969

PATIENT
  Age: 8 Year
  Sex: Male

DRUGS (5)
  1. TEARS NATURALE II [Suspect]
     Indication: POSTOPERATIVE CARE
     Dosage: 2 DF Q1H, OD
     Route: 047
  2. BSS [Suspect]
     Dosage: Total OD Ophthalmic)
     Route: 047
  3. CYCLOPENTOLATE [Concomitant]
  4. IBUPROFEN [Concomitant]
  5. CHLORAMPHENICOL [Concomitant]

REACTIONS (7)
  - Corneal deposits [None]
  - Anterior chamber disorder [None]
  - Corneal infiltrates [None]
  - Corneal oedema [None]
  - Conjunctival hyperaemia [None]
  - Photophobia [None]
  - Vision blurred [None]
